FAERS Safety Report 8069153-0 (Version None)
Quarter: 2012Q1

REPORT INFORMATION
  Report Type: 
  Country: None (occurrence: None)
  Receive Date: 20120125
  Receipt Date: 20120119
  Transmission Date: 20120608
  Serious: Yes (Other)
  Sender: FDA-Public Use
  Company Number: US-PFIZER INC-2012014189

PATIENT
  Sex: Female
  Weight: 79.8 kg

DRUGS (13)
  1. PRILOSEC [Concomitant]
     Indication: GASTROOESOPHAGEAL REFLUX DISEASE
     Dosage: 20 MG, DAILY
  2. LUPRON [Concomitant]
     Indication: UTERINE LEIOMYOMA
     Dosage: 7.5 MG, MONTHLY
  3. SAVELLA [Concomitant]
     Indication: FIBROMYALGIA
     Dosage: 25 MG, 2X/DAY
  4. LACTULOSE [Concomitant]
     Indication: HEPATIC CIRRHOSIS
     Dosage: 45 ML, DAILY
  5. ATIVAN [Concomitant]
     Indication: ANXIETY
     Dosage: 0.5 MG, AS NEEDED
  6. SPIRONOLACTONE [Concomitant]
     Indication: HEPATIC CIRRHOSIS
     Dosage: 100 MG, 2X/DAY
  7. TAMOXIFEN [Concomitant]
     Indication: BREAST CANCER
     Dosage: 20 MG, DAILY
  8. EFFEXOR XR [Suspect]
     Indication: ANXIETY
     Dosage: 75 MG, DAILY
     Dates: start: 20090101
  9. EFFEXOR XR [Suspect]
     Indication: DEPRESSION
  10. VENTOLIN [Concomitant]
     Indication: ASTHMA
     Dosage: EVERY FOUR HOURS
  11. FUROSEMIDE [Concomitant]
     Indication: HEPATIC CIRRHOSIS
     Dosage: 40 MG, 2X/DAY
  12. SLOW-MAG [Concomitant]
     Indication: HEPATIC CIRRHOSIS
     Dosage: 64 MG, 3X/DAY
  13. ADVAIR DISKUS 100/50 [Concomitant]
     Indication: ASTHMA
     Dosage: 1 DF, 2X/DAY

REACTIONS (5)
  - IRRITABILITY [None]
  - DEPRESSION [None]
  - DRUG INEFFECTIVE [None]
  - DEPRESSED MOOD [None]
  - INSOMNIA [None]
